FAERS Safety Report 10204774 (Version 4)
Quarter: 2014Q4

REPORT INFORMATION
  Report Type: Spontaneous
  Country: US (occurrence: US)
  Receive Date: 20140529
  Receipt Date: 20141217
  Transmission Date: 20150528
  Serious: Yes (Death, Life-Threatening, Congenital Anomaly, Other)
  Sender: FDA-Public Use
  Company Number: US-ELI_LILLY_AND_COMPANY-US201405008552

PATIENT
  Age: 9 Year

DRUGS (5)
  1. PROZAC [Suspect]
     Active Substance: FLUOXETINE HYDROCHLORIDE
     Indication: DEPRESSION
     Dosage: UNK, UNKNOWN
     Route: 064
     Dates: start: 20041122
  2. TYLENOL [Concomitant]
     Active Substance: ACETAMINOPHEN
  3. ERY-TAB [Concomitant]
     Active Substance: ERYTHROMYCIN
     Route: 064
  4. METRONIDAZOLE. [Concomitant]
     Active Substance: METRONIDAZOLE
     Dosage: UNK
     Route: 064
     Dates: start: 20041102
  5. ORTHO-CEPT [Concomitant]
     Active Substance: DESOGESTREL\ETHINYL ESTRADIOL
     Dosage: UNK
     Route: 064
     Dates: start: 20041212

REACTIONS (34)
  - Congenital megaureter [Fatal]
  - Gastrointestinal malformation [Fatal]
  - Liver function test abnormal [Unknown]
  - Apgar score low [Recovered/Resolved]
  - Bradycardia [Unknown]
  - Fungal infection [Fatal]
  - Spleen malformation [Fatal]
  - Univentricular heart [Fatal]
  - Dependence on respirator [Unknown]
  - Fallot^s tetralogy [Fatal]
  - Apnoea [Unknown]
  - Foetal exposure during pregnancy [Unknown]
  - Atrial septal defect [Fatal]
  - Atelectasis [Unknown]
  - Pancreatic disorder [Fatal]
  - Foetal cardiac disorder [Fatal]
  - Hypothyroidism [Unknown]
  - Congenital ureteric anomaly [Fatal]
  - Ventricular septal defect [Fatal]
  - Heart block congenital [Fatal]
  - Ventricular fibrillation [Fatal]
  - Premature baby [Unknown]
  - Pelvic fluid collection [Unknown]
  - Heterotaxia [Fatal]
  - Heart disease congenital [Fatal]
  - Pneumothorax [Unknown]
  - Laryngeal oedema [Unknown]
  - Congenital arterial malformation [Fatal]
  - Vascular malformation [Fatal]
  - Jaundice neonatal [Unknown]
  - Pleural effusion [Unknown]
  - Pericardial effusion [Unknown]
  - Ulcer [Unknown]
  - Cyanosis [Unknown]

NARRATIVE: CASE EVENT DATE: 20050601
